FAERS Safety Report 8590488-7 (Version None)
Quarter: 2012Q3

REPORT INFORMATION
  Report Type: 
  Country: None (occurrence: None)
  Receive Date: 20120813
  Receipt Date: 20120807
  Transmission Date: 20120928
  Serious: Yes (Other)
  Sender: FDA-Public Use
  Company Number: PHFR2012GB004129

PATIENT
  Sex: Female

DRUGS (6)
  1. COLISTIN SULFATE [Concomitant]
     Dosage: 1 DF, BID
  2. TOBI [Suspect]
     Indication: CYSTIC FIBROSIS
     Dosage: 112 MG, BID
     Dates: start: 20120621, end: 20120628
  3. TOBI [Suspect]
     Indication: COUGH
  4. PULMOZYME [Concomitant]
     Dosage: UNK UKN, UNK
     Dates: start: 20081223
  5. TOBI [Suspect]
     Indication: PSEUDOMONAS INFECTION
  6. COMBIVENT [Concomitant]
     Dosage: 1 DF, BID
     Dates: start: 20111125

REACTIONS (2)
  - LOWER RESPIRATORY TRACT INFECTION [None]
  - COUGH [None]
